FAERS Safety Report 17734015 (Version 1)
Quarter: 2020Q2

REPORT INFORMATION
  Report Type: Spontaneous
  Country: CA (occurrence: CA)
  Receive Date: 20200501
  Receipt Date: 20200501
  Transmission Date: 20200714
  Serious: Yes (Other)
  Sender: FDA-Public Use
  Company Number: CA-BAXTER-2020BAX009064

PATIENT
  Age: 33 Year
  Sex: Male

DRUGS (4)
  1. BICARBONATE CONCENTRATION D17000 [Suspect]
     Active Substance: SODIUM BICARBONATE
     Indication: HAEMODIALYSIS
     Route: 010
  2. SODIUM BICARBONATE FOR HEAMODIALYSIS [Suspect]
     Active Substance: SODIUM BICARBONATE
     Indication: HAEMODIALYSIS
     Route: 010
  3. HEPARIN SODIUM AND 0.9% SODIUM CHLORIDE INJECTION [Suspect]
     Active Substance: HEPARIN SODIUM\SODIUM CHLORIDE
     Indication: ANTICOAGULANT THERAPY
     Route: 010
  4. 0.9% SODIUM CHLORIDE INJECTION [Suspect]
     Active Substance: SODIUM CHLORIDE
     Indication: PRODUCT USED FOR UNKNOWN INDICATION
     Route: 065

REACTIONS (1)
  - Neuropathy peripheral [Not Recovered/Not Resolved]
